FAERS Safety Report 9990509 (Version 2)
Quarter: 2014Q1

REPORT INFORMATION
  Report Type: Spontaneous
  Country: US (occurrence: US)
  Receive Date: 20140310
  Receipt Date: 20140331
  Transmission Date: 20141002
  Serious: No
  Sender: FDA-Public Use
  Company Number: US-PFIZER INC-2014065436

PATIENT
  Age: 36 Year
  Sex: Female

DRUGS (3)
  1. SUTENT [Suspect]
     Indication: OVARIAN CLEAR CELL CARCINOMA
     Dosage: 37 MG, (1-25MG CAPSULE AND 1-12.5 MG)DAILY
     Route: 048
     Dates: start: 20130924
  2. SUTENT [Suspect]
     Dosage: UNK
     Dates: start: 201312
  3. SUTENT [Suspect]
     Dosage: 37.5 MG

REACTIONS (3)
  - Blister [Unknown]
  - Rash [Recovering/Resolving]
  - Off label use [Unknown]
